FAERS Safety Report 10663939 (Version 3)
Quarter: 2015Q2

REPORT INFORMATION
  Report Type: Report from Study
  Country: US (occurrence: US)
  Receive Date: 20141219
  Receipt Date: 20150611
  Transmission Date: 20150821
  Serious: Yes (Death, Other)
  Sender: FDA-Public Use
  Company Number: US-GILEAD-2014-0127770

PATIENT
  Age: 62 Year
  Sex: Male

DRUGS (3)
  1. AMBRISENTAN [Suspect]
     Active Substance: AMBRISENTAN
     Indication: COR PULMONALE
  2. AMBRISENTAN [Suspect]
     Active Substance: AMBRISENTAN
     Indication: CHRONIC OBSTRUCTIVE PULMONARY DISEASE
  3. AMBRISENTAN [Suspect]
     Active Substance: AMBRISENTAN
     Indication: PULMONARY HYPERTENSION
     Dosage: 10 MG, QD
     Route: 065
     Dates: start: 20130911, end: 20141101

REACTIONS (2)
  - Lung carcinoma cell type unspecified stage III [Unknown]
  - Death [Fatal]

NARRATIVE: CASE EVENT DATE: 20130911
